FAERS Safety Report 21525946 (Version 2)
Quarter: 2022Q4

REPORT INFORMATION
  Report Type: Spontaneous
  Country: JP (occurrence: JP)
  Receive Date: 20221031
  Receipt Date: 20221208
  Transmission Date: 20230112
  Serious: Yes (Death, Other)
  Sender: FDA-Public Use
  Company Number: JP-DSJP-DSJ-2022-137966

PATIENT
  Age: 52 Year
  Sex: Female

DRUGS (3)
  1. DENOSUMAB [Suspect]
     Active Substance: DENOSUMAB
     Indication: Metastases to bone
     Dosage: 120 MILLIGRAM
     Route: 058
     Dates: start: 20131125
  2. XELODA [Concomitant]
     Active Substance: CAPECITABINE
     Dosage: 1500 MILLIGRAM, BID
     Route: 048
     Dates: start: 20170907
  3. CALCIUM CARBONATE\CHOLECALCIFEROL\MAGNESIUM CARBONATE [Concomitant]
     Active Substance: CALCIUM CARBONATE\CHOLECALCIFEROL\MAGNESIUM CARBONATE
     Dosage: UNK UNK, QD
     Route: 048
     Dates: start: 201311

REACTIONS (2)
  - Atypical femur fracture [Recovering/Resolving]
  - Death [Fatal]

NARRATIVE: CASE EVENT DATE: 20200129
